FAERS Safety Report 8794042 (Version 2)
Quarter: 2012Q4

REPORT INFORMATION
  Report Type: 
  Country: GB (occurrence: GB)
  Receive Date: 20120917
  Receipt Date: 20121003
  Transmission Date: 20130627
  Serious: Yes (Other)
  Sender: FDA-Public Use
  Company Number: PHFR2012GB004946

PATIENT
  Age: 50 Year
  Sex: Female

DRUGS (7)
  1. CLOZARIL [Suspect]
     Indication: SCHIZOPHRENIA
     Dosage: 400 mg daily
     Route: 048
     Dates: start: 20070914, end: 20120813
  2. ARIPIPRAZOLE [Concomitant]
     Dosage: 15 mg daily
     Route: 048
     Dates: start: 2012
  3. VENLAFAXINE [Concomitant]
     Indication: DEPRESSION
     Dosage: 225 mg daily
     Route: 048
  4. OMEPRAZOLE [Concomitant]
     Indication: GASTROINTESTINAL DISORDER
     Dosage: 20 mg daily
     Route: 048
  5. DIAZEPAM [Concomitant]
     Indication: ANXIETY
     Dosage: 10 mg daily
     Route: 048
     Dates: start: 2009
  6. ASPIRINE [Concomitant]
     Dosage: 75 mg daily
     Route: 048
  7. SIMVASTATIN [Concomitant]

REACTIONS (5)
  - Disorientation [Unknown]
  - Confusional state [Not Recovered/Not Resolved]
  - Incorrect dose administered [Unknown]
  - C-reactive protein increased [Unknown]
  - Blood alkaline phosphatase increased [Unknown]
